FAERS Safety Report 25728733 (Version 1)
Quarter: 2025Q3

REPORT INFORMATION
  Report Type: Spontaneous
  Country: CN (occurrence: CN)
  Receive Date: 20250826
  Receipt Date: 20250826
  Transmission Date: 20251021
  Serious: Yes (Life-Threatening, Other)
  Sender: PURDUE
  Company Number: CN-NAPPMUNDI-GBR-2025-0128238

PATIENT
  Age: 58 Year
  Sex: Male

DRUGS (1)
  1. OXYCODONE HYDROCHLORIDE [Suspect]
     Active Substance: OXYCODONE HYDROCHLORIDE
     Indication: Analgesic therapy
     Dosage: 120 MILLIGRAM, BID
     Route: 048
     Dates: start: 20250729, end: 20250807

REACTIONS (2)
  - Miosis [Recovering/Resolving]
  - Dysarthria [Recovering/Resolving]

NARRATIVE: CASE EVENT DATE: 20250807
